FAERS Safety Report 12176433 (Version 3)
Quarter: 2016Q2

REPORT INFORMATION
  Report Type: Report from Study
  Country: US (occurrence: US)
  Receive Date: 20160314
  Receipt Date: 20160513
  Transmission Date: 20160815
  Serious: Yes (Hospitalization, Other)
  Sender: FDA-Public Use
  Company Number: US-ACTELION-A-NJ2015-123826

PATIENT
  Age: 66 Year
  Sex: Female

DRUGS (4)
  1. MACITENTAN [Suspect]
     Active Substance: MACITENTAN
     Indication: PULMONARY ARTERIAL HYPERTENSION
     Dosage: 10 MG, QD
     Route: 048
     Dates: start: 20150202
  2. COUMADIN [Concomitant]
     Active Substance: WARFARIN SODIUM
  3. HYDROCODONE [Concomitant]
     Active Substance: HYDROCODONE
  4. OXYCODONE [Concomitant]
     Active Substance: OXYCODONE

REACTIONS (6)
  - Insomnia [Unknown]
  - Arthropathy [Unknown]
  - Drug hypersensitivity [Unknown]
  - Knee arthroplasty [Unknown]
  - Nail infection [Unknown]
  - Pruritus [Unknown]
